FAERS Safety Report 4415318-6 (Version None)
Quarter: 2004Q3

REPORT INFORMATION
  Report Type: 
  Country: None (occurrence: None)
  Receive Date: 20040730
  Receipt Date: 20040720
  Transmission Date: 20050211
  Serious: Yes (Other)
  Sender: FDA-Public Use
  Company Number: 2004-DE-04000GD

PATIENT
  Age: 3 Year
  Sex: Male

DRUGS (4)
  1. METHOTREXATE [Suspect]
     Indication: INFLAMMATION
     Dosage: SEE IMAGE
  2. METHOTREXATE [Suspect]
     Indication: NEONATAL DISORDER
     Dosage: SEE IMAGE
  3. PREDNISOLONE [Suspect]
     Indication: INFLAMMATION
     Dosage: 10 MG ONCE MONTHLY (NR), IT
  4. PREDNISOLONE [Suspect]
     Indication: NEONATAL DISORDER
     Dosage: 10 MG ONCE MONTHLY (NR), IT

REACTIONS (6)
  - DEAFNESS NEUROSENSORY [None]
  - GENERAL PHYSICAL HEALTH DETERIORATION [None]
  - INFLAMMATION [None]
  - SUBDURAL HAEMATOMA [None]
  - URTICARIA [None]
  - VISUAL ACUITY REDUCED [None]
